FAERS Safety Report 5050587-3 (Version None)
Quarter: 2006Q3

REPORT INFORMATION
  Report Type: 
  Country: None (occurrence: None)
  Receive Date: 20060713
  Receipt Date: 20060706
  Transmission Date: 20061208
  Serious: Yes (Other)
  Sender: FDA-Public Use
  Company Number: BE-GLAXOSMITHKLINE-B0430392A

PATIENT
  Age: 45 Year
  Sex: Male

DRUGS (2)
  1. MALARONE [Suspect]
     Indication: MALARIA PROPHYLAXIS
     Route: 048
     Dates: start: 20060101, end: 20060101
  2. ANXIOLYTIC [Concomitant]
     Indication: STRESS

REACTIONS (1)
  - CONFUSIONAL STATE [None]
